FAERS Safety Report 5718316-5 (Version None)
Quarter: 2008Q2

REPORT INFORMATION
  Report Type: 
  Country: None (occurrence: None)
  Receive Date: 20080425
  Receipt Date: 20080422
  Transmission Date: 20081010
  Serious: Yes (Hospitalization)
  Sender: FDA-Public Use
  Company Number: US-BRISTOL-MYERS SQUIBB COMPANY-14160147

PATIENT
  Age: 56 Year
  Sex: Female
  Weight: 71 kg

DRUGS (4)
  1. CISPLATIN [Suspect]
     Indication: NEOPLASM MALIGNANT
     Dosage: INITIATED ON 10-MAR-2008.
     Dates: start: 20080331, end: 20080331
  2. RADIATION THERAPY [Suspect]
     Indication: NEOPLASM MALIGNANT
     Dosage: 1DF=33GY; NO. OF FRACT: 35,ELASPSED DAYS:33.
     Dates: start: 20080416, end: 20080416
  3. ATIVAN [Concomitant]
     Dosage: 1MG,30MIN BEFORE RADIATION THERAPY,ALSO AS Q6H.
  4. OXYCODONE HCL [Concomitant]
     Indication: PAIN
     Dosage: FREQUENCY-Q4H.

REACTIONS (10)
  - ANOREXIA [None]
  - ASPIRATION [None]
  - BLOOD ALKALINE PHOSPHATASE INCREASED [None]
  - BLOOD CREATININE INCREASED [None]
  - BLOOD GLUCOSE INCREASED [None]
  - BLOOD LACTATE DEHYDROGENASE INCREASED [None]
  - CONSTIPATION [None]
  - DEHYDRATION [None]
  - DYSPHAGIA [None]
  - SPUTUM DISCOLOURED [None]
